FAERS Safety Report 5348415-1 (Version None)
Quarter: 2007Q2

REPORT INFORMATION
  Report Type: 
  Country: None (occurrence: None)
  Receive Date: 20070606
  Receipt Date: 20070525
  Transmission Date: 20071010
  Serious: Yes (Other)
  Sender: FDA-Public Use
  Company Number: DK-PFIZER INC-2007023411

PATIENT
  Sex: Female

DRUGS (1)
  1. VARENICLINE TABLETS [Suspect]
     Indication: EX-SMOKER
     Route: 048
     Dates: start: 20070115, end: 20070207

REACTIONS (2)
  - ALANINE AMINOTRANSFERASE INCREASED [None]
  - HEADACHE [None]
